FAERS Safety Report 10870107 (Version 1)
Quarter: 2015Q1

REPORT INFORMATION
  Report Type: Spontaneous
  Country: ZA (occurrence: ZA)
  Receive Date: 20150226
  Receipt Date: 20150226
  Transmission Date: 20150721
  Serious: Yes (Disabling)
  Sender: FDA-Public Use
  Company Number: ZA-ASTRAZENECA-2015SE17348

PATIENT
  Age: 764 Month
  Sex: Female
  Weight: 60 kg

DRUGS (4)
  1. CRESTOR [Suspect]
     Active Substance: ROSUVASTATIN CALCIUM
     Indication: HYPERCHOLESTEROLAEMIA
     Route: 048
     Dates: start: 20100105
  2. B CAL D [Concomitant]
     Indication: OSTEOPOROSIS
     Dates: start: 2004
  3. PROTOS [Concomitant]
     Indication: OSTEOPOROSIS
     Dates: start: 20100810
  4. ECOTRIN [Concomitant]
     Active Substance: ASPIRIN
     Indication: PROPHYLAXIS
     Dates: start: 2004

REACTIONS (1)
  - Deafness unilateral [Not Recovered/Not Resolved]

NARRATIVE: CASE EVENT DATE: 201408
